FAERS Safety Report 10507463 (Version 2)
Quarter: 2014Q4

REPORT INFORMATION
  Report Type: Spontaneous
  Country: US (occurrence: US)
  Receive Date: 20141009
  Receipt Date: 20141009
  Transmission Date: 20150528
  Serious: No
  Sender: FDA-Public Use
  Company Number: US-AMGEN INC.-USASP2014071914

PATIENT
  Age: 77 Year
  Sex: Female

DRUGS (4)
  1. PROZAC [Concomitant]
     Active Substance: FLUOXETINE HYDROCHLORIDE
     Dosage: UNK UNK, QD
     Route: 048
  2. WELLBUTRIN [Concomitant]
     Active Substance: BUPROPION HYDROCHLORIDE
     Indication: DEPRESSION
     Dosage: 150 MG, QD
     Route: 048
  3. KLONOPIN [Concomitant]
     Active Substance: CLONAZEPAM
     Indication: ANXIETY
     Dosage: 1 MG, BID
     Route: 048
  4. PROLIA [Suspect]
     Active Substance: DENOSUMAB
     Indication: OSTEOPOROSIS POSTMENOPAUSAL
     Dosage: 60 MG, UNK
     Route: 058
     Dates: start: 20140108

REACTIONS (13)
  - Visual impairment [Unknown]
  - Balance disorder [Unknown]
  - Malaise [Unknown]
  - Tremor [Unknown]
  - Myalgia [Unknown]
  - Rash [Unknown]
  - Pain [Recovered/Resolved]
  - Musculoskeletal disorder [Unknown]
  - Movement disorder [Recovered/Resolved]
  - Mobility decreased [Recovered/Resolved]
  - Skin haemorrhage [Unknown]
  - Feeling abnormal [Unknown]
  - Diplopia [Recovered/Resolved]

NARRATIVE: CASE EVENT DATE: 2014
